FAERS Safety Report 12787869 (Version 1)
Quarter: 2016Q3

REPORT INFORMATION
  Report Type: Spontaneous
  Country: CN (occurrence: CN)
  Receive Date: 20160928
  Receipt Date: 20160928
  Transmission Date: 20161109
  Serious: Yes (Hospitalization, Other)
  Sender: FDA-Public Use
  Company Number: CN-GILEAD-2016-0234754

PATIENT
  Age: 68 Year
  Sex: Male

DRUGS (2)
  1. HEPSERA [Suspect]
     Active Substance: ADEFOVIR DIPIVOXIL
     Indication: HEPATITIS B
     Dosage: UNK
     Route: 048
     Dates: start: 2009, end: 2011
  2. HEPTODIN [Suspect]
     Active Substance: LAMIVUDINE
     Indication: HEPATITIS B
     Dosage: 0.1 G, QD
     Route: 048
     Dates: start: 201203

REACTIONS (3)
  - Disease recurrence [Recovered/Resolved]
  - Drug resistance [Not Recovered/Not Resolved]
  - Hepatitis B [Unknown]

NARRATIVE: CASE EVENT DATE: 201203
